FAERS Safety Report 8049760-1 (Version None)
Quarter: 2012Q1

REPORT INFORMATION
  Report Type: 
  Country: None (occurrence: None)
  Receive Date: 20120117
  Receipt Date: 20120113
  Transmission Date: 20120608
  Serious: Yes (Death)
  Sender: FDA-Public Use
  Company Number: FR-SANOFI-AVENTIS-2012SA002706

PATIENT
  Age: 65 Year
  Sex: Male

DRUGS (9)
  1. ESIDRIX [Concomitant]
  2. RABEPRAZOLE SODIUM [Concomitant]
  3. DOCETAXEL [Suspect]
     Indication: LUNG NEOPLASM MALIGNANT
     Route: 042
     Dates: start: 20111110, end: 20111110
  4. ERLOTINIB HYDROCHLORIDE [Suspect]
     Indication: LUNG NEOPLASM MALIGNANT
     Route: 065
     Dates: start: 20111122, end: 20111207
  5. TINZAPARIN SODIUM [Concomitant]
  6. LASIX [Concomitant]
  7. PREDNISONE TAB [Concomitant]
  8. JANUVIA [Concomitant]
  9. ISOPTIN [Concomitant]

REACTIONS (1)
  - PULMONARY EMBOLISM [None]
